FAERS Safety Report 10131773 (Version 2)
Quarter: 2014Q2

REPORT INFORMATION
  Report Type: Report from Study
  Country: US (occurrence: US)
  Receive Date: 20140428
  Receipt Date: 20140509
  Transmission Date: 20141212
  Serious: Yes (Death)
  Sender: FDA-Public Use
  Company Number: US-ACTELION-A-NJ2014-97697

PATIENT
  Age: 50 Year
  Sex: Female

DRUGS (4)
  1. TRACLEER [Suspect]
     Indication: PULMONARY ARTERIAL HYPERTENSION
     Dosage: 62.5 MG, BID
     Route: 048
     Dates: start: 20120622, end: 20140409
  2. NITROBID [Concomitant]
     Dosage: UNK, BID
  3. SPIRONOLACTONE [Concomitant]
     Dosage: 25 MG, UNK
  4. PREDNISONE [Concomitant]
     Dosage: 5 MG, UNK

REACTIONS (1)
  - Congestive cardiomyopathy [Fatal]
